FAERS Safety Report 20879667 (Version 1)
Quarter: 2022Q2

REPORT INFORMATION
  Report Type: Spontaneous
  Country: US (occurrence: US)
  Receive Date: 20220526
  Receipt Date: 20220526
  Transmission Date: 20220720
  Serious: No
  Sender: FDA-Public Use
  Company Number: US-RADIUS HEALTH INC.-2021US004275

PATIENT
  Sex: Female

DRUGS (1)
  1. TYMLOS [Suspect]
     Active Substance: ABALOPARATIDE
     Indication: Osteoporosis
     Dosage: 80 MCG, DAILY, STARTED ABOUT 50 DAYS AGO
     Route: 065
     Dates: start: 2021

REACTIONS (3)
  - Nervousness [Recovered/Resolved]
  - Head discomfort [Recovered/Resolved]
  - Headache [Recovered/Resolved]
